FAERS Safety Report 19132402 (Version 1)
Quarter: 2021Q2

REPORT INFORMATION
  Report Type: Other
  Country: AT (occurrence: AT)
  Receive Date: 20210414
  Receipt Date: 20210414
  Transmission Date: 20210717
  Serious: Yes (Other)
  Sender: FDA-Public Use
  Company Number: AT-ROCHE-2806154

PATIENT
  Age: 68 Year
  Sex: Female

DRUGS (8)
  1. PACLITAXEL. [Concomitant]
     Active Substance: PACLITAXEL
     Indication: BREAST CANCER
     Dates: start: 201606, end: 201612
  2. LETROZOLE. [Concomitant]
     Active Substance: LETROZOLE
     Indication: BREAST CANCER
     Dates: start: 201307, end: 201405
  3. PALBOCICLIB [Concomitant]
     Active Substance: PALBOCICLIB
     Indication: BREAST CANCER
     Dates: end: 201908
  4. FASLODEX [Concomitant]
     Active Substance: FULVESTRANT
     Indication: BREAST CANCER
     Dates: start: 201405, end: 201408
  5. FASLODEX [Concomitant]
     Active Substance: FULVESTRANT
     Dates: start: 201502, end: 201602
  6. LETROZOLE. [Concomitant]
     Active Substance: LETROZOLE
     Dates: end: 201908
  7. ERIBULIN [Concomitant]
     Active Substance: ERIBULIN
     Indication: BREAST CANCER
     Dosage: ON DAY 1 AND DAY 8 EVERY 22 DAYS CYCLE
     Dates: start: 201908
  8. CAPECITABINE. [Suspect]
     Active Substance: CAPECITABINE
     Indication: BREAST CANCER
     Route: 065
     Dates: start: 201602, end: 201606

REACTIONS (1)
  - Hyperbilirubinaemia [Unknown]

NARRATIVE: CASE EVENT DATE: 201606
